FAERS Safety Report 24871222 (Version 1)
Quarter: 2025Q1

REPORT INFORMATION
  Report Type: Spontaneous
  Country: KR (occurrence: KR)
  Receive Date: 20250122
  Receipt Date: 20250122
  Transmission Date: 20250409
  Serious: Yes (Other)
  Sender: JOHNSON AND JOHNSON
  Company Number: KR-JNJFOC-20250159680

PATIENT
  Age: 60 Year
  Sex: Female

DRUGS (1)
  1. TAPENTADOL HYDROCHLORIDE [Suspect]
     Active Substance: TAPENTADOL HYDROCHLORIDE
     Indication: Product used for unknown indication
     Dates: start: 20220223, end: 20220223

REACTIONS (4)
  - Anaphylactic reaction [Recovered/Resolved]
  - Chills [Recovered/Resolved]
  - Pruritus [Recovered/Resolved]
  - Asthenia [Recovered/Resolved]

NARRATIVE: CASE EVENT DATE: 20220223
